FAERS Safety Report 18628397 (Version 1)
Quarter: 2020Q4

REPORT INFORMATION
  Report Type: Spontaneous
  Country: AR (occurrence: AR)
  Receive Date: 20201217
  Receipt Date: 20201217
  Transmission Date: 20210114
  Serious: Yes (Other)
  Sender: FDA-Public Use
  Company Number: AR-PFIZER INC-2020498150

PATIENT
  Age: 47 Year
  Sex: Female

DRUGS (1)
  1. TOFACITINIB CITRATE [Suspect]
     Active Substance: TOFACITINIB CITRATE
     Indication: RHEUMATOID ARTHRITIS
     Dosage: 11 MG, DAILY
     Dates: start: 2015

REACTIONS (4)
  - Malignant melanoma [Unknown]
  - HIV test positive [Unknown]
  - Papilloma viral infection [Unknown]
  - Genital injury [Unknown]

NARRATIVE: CASE EVENT DATE: 2018
